FAERS Safety Report 8500609-X (Version None)
Quarter: 2012Q3

REPORT INFORMATION
  Report Type: 
  Country: None (occurrence: None)
  Receive Date: 20120710
  Receipt Date: 20120625
  Transmission Date: 20120928
  Serious: Yes (Other)
  Sender: FDA-Public Use
  Company Number: GB-ROCHE-1081411

PATIENT
  Age: 37 Year
  Sex: Female
  Weight: 60.3 kg

DRUGS (3)
  1. HERCEPTIN [Suspect]
     Indication: BREAST CANCER
     Route: 042
     Dates: start: 20110901
  2. PROPRANOLOL [Concomitant]
     Indication: ANXIETY
     Route: 048
     Dates: start: 20120201
  3. TAMOXIFEN CITRATE [Suspect]
     Indication: BREAST CANCER
     Route: 048
     Dates: start: 20110901

REACTIONS (6)
  - OCULAR HYPERAEMIA [None]
  - URTICARIA [None]
  - EYE PRURITUS [None]
  - EYE PAIN [None]
  - PHOTOSENSITIVITY REACTION [None]
  - EYE SWELLING [None]
